FAERS Safety Report 5673021-9 (Version None)
Quarter: 2008Q1

REPORT INFORMATION
  Report Type: 
  Country: None (occurrence: None)
  Receive Date: 20080317
  Receipt Date: 20080303
  Transmission Date: 20080703
  Serious: Yes (Other)
  Sender: FDA-Public Use
  Company Number: FABR-1000121

PATIENT
  Age: 40 Year
  Sex: Male

DRUGS (1)
  1. FABRAZYME [Suspect]
     Indication: FABRY'S DISEASE
     Dosage: 75 MG, INTRAVENOUS
     Route: 042
     Dates: start: 20051201

REACTIONS (7)
  - ADVERSE EVENT [None]
  - ANXIETY [None]
  - CHEST DISCOMFORT [None]
  - DIALYSIS [None]
  - DISEASE RECURRENCE [None]
  - FEELING ABNORMAL [None]
  - RENAL FAILURE [None]
